FAERS Safety Report 7711912-5 (Version None)
Quarter: 2011Q3

REPORT INFORMATION
  Report Type: 
  Country: None (occurrence: None)
  Receive Date: 20110822
  Receipt Date: 20110811
  Transmission Date: 20111222
  Serious: Yes (Other)
  Sender: FDA-Public Use
  Company Number: CIP11001971

PATIENT
  Age: 71 Year
  Sex: Female

DRUGS (8)
  1. VITAMIN B /00154901/(RIBOFLAVIN) [Concomitant]
  2. VITAMIN C /00008001/(ASCORBIC ACID) [Concomitant]
  3. CENTRUM /00665602*(MINERALS NOS, VITAMINS NOS) [Concomitant]
  4. ALL OTHER THERAPEUTIC PRODUCTS [Concomitant]
  5. VITAMIN E /00110501/(TOCOPHEROL) [Concomitant]
  6. ACTONEL [Suspect]
     Indication: OSTEOPOROSIS
     Dosage: 35 MG, ONCE A WEEK, ORAL
     Route: 048
     Dates: start: 20050101
  7. ALL OTHER THERAPEUTIC PRODUTS [Concomitant]
  8. COD LIVER OIL FORTIFIED TAB [Concomitant]

REACTIONS (10)
  - BONE PAIN [None]
  - OESOPHAGEAL RUPTURE [None]
  - PAIN [None]
  - VOMITING [None]
  - ARTHRALGIA [None]
  - MILK ALLERGY [None]
  - FOOD ALLERGY [None]
  - MYALGIA [None]
  - HYPOAESTHESIA [None]
  - BACK PAIN [None]
